FAERS Safety Report 6278362-2 (Version None)
Quarter: 2009Q3

REPORT INFORMATION
  Report Type: 
  Country: None (occurrence: None)
  Receive Date: 20090720
  Receipt Date: 20090720
  Transmission Date: 20100115
  Serious: Yes (Death)
  Sender: FDA-Public Use
  Company Number: None

PATIENT
  Age: 74 Year
  Sex: Female
  Weight: 58.9676 kg

DRUGS (1)
  1. EVISTA [Suspect]

REACTIONS (3)
  - BRONCHITIS [None]
  - INTERSTITIAL LUNG DISEASE [None]
  - NO THERAPEUTIC RESPONSE [None]
